FAERS Safety Report 11577598 (Version 2)
Quarter: 2015Q4

REPORT INFORMATION
  Report Type: Spontaneous
  Country: JP (occurrence: JP)
  Receive Date: 20150930
  Receipt Date: 20151022
  Transmission Date: 20160304
  Serious: Yes (Other)
  Sender: FDA-Public Use
  Company Number: JP-MALLINCKRODT-T201504514

PATIENT
  Age: 19 Year
  Sex: Male
  Weight: 51 kg

DRUGS (11)
  1. NEO SYNESIN [Concomitant]
     Active Substance: PHENYLEPHRINE HYDROCHLORIDE
     Route: 042
  2. SOLDEM 3A [Concomitant]
     Active Substance: CARBOHYDRATES\POTASSIUM CHLORIDE\SODIUM CHLORIDE\SODIUM LACTATE
     Route: 042
  3. ESLAX [Suspect]
     Active Substance: ROCURONIUM BROMIDE
     Indication: PRODUCT USED FOR UNKNOWN INDICATION
     Dosage: UNK
     Route: 042
     Dates: start: 20150818, end: 20150818
  4. RAVONAL [Suspect]
     Active Substance: THIOPENTAL
     Indication: PRODUCT USED FOR UNKNOWN INDICATION
     Dosage: 250 MG
     Route: 042
     Dates: start: 20150818, end: 20150818
  5. SEVOFRANE [Suspect]
     Active Substance: SEVOFLURANE
     Indication: PRODUCT USED FOR UNKNOWN INDICATION
     Dosage: UNK
     Route: 055
     Dates: start: 20150818, end: 20150818
  6. BRIDION [Concomitant]
     Active Substance: SUGAMMADEX
     Route: 042
  7. EPHEDRIN [Concomitant]
     Active Substance: EPHEDRINE HYDROCHLORIDE
     Route: 042
  8. CEFMETAZOLE [Concomitant]
     Active Substance: CEFMETAZOLE
     Route: 042
  9. OFIRMEV [Suspect]
     Active Substance: ACETAMINOPHEN
     Indication: POSTOPERATIVE ANALGESIA
     Dosage: 500 MG
     Route: 042
     Dates: start: 20150818, end: 20150818
  10. ULTIVA [Suspect]
     Active Substance: REMIFENTANIL HYDROCHLORIDE
     Indication: PRODUCT USED FOR UNKNOWN INDICATION
     Dosage: UNK
     Route: 042
     Dates: start: 20150818, end: 20150818
  11. BOSMIN [Concomitant]
     Active Substance: EPINEPHRINE
     Route: 042

REACTIONS (2)
  - Generalised erythema [Recovered/Resolved]
  - Anaphylactic reaction [Recovered/Resolved]

NARRATIVE: CASE EVENT DATE: 20150818
